FAERS Safety Report 14535305 (Version 2)
Quarter: 2018Q1

REPORT INFORMATION
  Report Type: Spontaneous
  Country: AU (occurrence: AU)
  Receive Date: 20180215
  Receipt Date: 20180308
  Transmission Date: 20180509
  Serious: Yes (Other)
  Sender: FDA-Public Use
  Company Number: AU-AMGEN-AUSSP2018012714

PATIENT
  Age: 71 Year
  Sex: Female
  Weight: 68.1 kg

DRUGS (1)
  1. PROLIA [Suspect]
     Active Substance: DENOSUMAB
     Indication: OSTEOPOROSIS
     Dosage: UNK
     Route: 058
     Dates: start: 20170225, end: 20170225

REACTIONS (8)
  - Weight decreased [Recovered/Resolved]
  - Myalgia [Recovered/Resolved]
  - Arthralgia [Recovered/Resolved]
  - Abdominal distension [Recovered/Resolved]
  - Abdominal discomfort [Recovered/Resolved]
  - Gingivitis [Recovered/Resolved]
  - Gingival pain [Recovered/Resolved]
  - Rash [Recovered/Resolved]

NARRATIVE: CASE EVENT DATE: 201702
